FAERS Safety Report 9706688 (Version 2)
Quarter: 2014Q1

REPORT INFORMATION
  Report Type: Report from Study
  Country: US (occurrence: US)
  Receive Date: 20131125
  Receipt Date: 20140317
  Transmission Date: 20141002
  Serious: Yes (Other)
  Sender: FDA-Public Use
  Company Number: US-MYLANLABS-2013S1026074

PATIENT
  Age: 24 Year
  Sex: Female

DRUGS (2)
  1. AMNESTEEM CAPSULES [Suspect]
     Dates: start: 20130205, end: 201307
  2. CLARAVIS [Suspect]
     Dates: start: 20130205, end: 201307

REACTIONS (1)
  - Maternal exposure before pregnancy [Not Recovered/Not Resolved]
